FAERS Safety Report 12801487 (Version 3)
Quarter: 2016Q4

REPORT INFORMATION
  Report Type: Report from Study
  Country: FR (occurrence: FR)
  Receive Date: 20161003
  Receipt Date: 20161027
  Transmission Date: 20170207
  Serious: Yes (Hospitalization)
  Sender: FDA-Public Use
  Company Number: FR-ROCHE-1832948

PATIENT
  Age: 79 Year
  Sex: Male
  Weight: 72 kg

DRUGS (16)
  1. CO APROVEL [Concomitant]
     Active Substance: HYDROCHLOROTHIAZIDE\IRBESARTAN
     Indication: HYPERTENSION
     Dosage: 25 MG/300 MG
     Route: 048
     Dates: start: 20160515, end: 20160919
  2. BEDELIX [Concomitant]
     Indication: DIARRHOEA
  3. OMEPRAZOLE. [Concomitant]
     Active Substance: OMEPRAZOLE
     Indication: DYSPEPSIA
     Route: 048
     Dates: start: 2014
  4. KARDEGIC [Concomitant]
     Active Substance: ASPIRIN LYSINE
     Indication: HYPERTENSION
     Route: 048
     Dates: start: 1991
  5. SMECTA [Concomitant]
     Active Substance: MONTMORILLONITE
     Indication: DIARRHOEA
     Dosage: 1 OTHER
     Route: 048
     Dates: start: 20160513
  6. BEVACIZUMAB [Suspect]
     Active Substance: BEVACIZUMAB
     Indication: RENAL CELL CARCINOMA
     Dosage: DATE OF MOST RECENT DOSE PRIOR TO THE EVENT ONSET: 26/APR/2016 OF 1065 MG?DOSE PER PROTOCOL
     Route: 042
     Dates: start: 20160426
  7. PANFUREX [Concomitant]
     Active Substance: NIFUROXAZIDE
     Indication: CONSTIPATION
  8. BEDELIX [Concomitant]
     Indication: CONSTIPATION
     Route: 048
     Dates: start: 2003
  9. OMEPRAZOLE. [Concomitant]
     Active Substance: OMEPRAZOLE
     Indication: GASTROOESOPHAGEAL REFLUX DISEASE
  10. UVEDOSE [Concomitant]
     Active Substance: CHOLECALCIFEROL
     Indication: VITAMIN D DEFICIENCY
     Route: 048
     Dates: start: 2011
  11. SIMVASTATINE [Concomitant]
     Active Substance: SIMVASTATIN
     Indication: HYPERCHOLESTEROLAEMIA
     Route: 048
     Dates: start: 2012, end: 201608
  12. ATEZOLIZUMAB [Suspect]
     Active Substance: ATEZOLIZUMAB
     Indication: RENAL CELL CARCINOMA
     Dosage: DATE OF MOST RECENT DOSE PRIOR TO THE EVENT ONSET: 19/SEP/2016
     Route: 042
     Dates: start: 20160426
  13. ACEBUTOLOL [Concomitant]
     Active Substance: ACEBUTOLOL
     Indication: HYPERTENSION
     Route: 048
     Dates: start: 1993
  14. PANFUREX [Concomitant]
     Active Substance: NIFUROXAZIDE
     Indication: DIARRHOEA
     Route: 048
     Dates: start: 2003
  15. CO APROVEL [Concomitant]
     Active Substance: HYDROCHLOROTHIAZIDE\IRBESARTAN
     Indication: HYPERTENSION
     Dosage: 12.5 TABLET/150 MG
     Route: 048
     Dates: start: 20160919
  16. SMECTA [Concomitant]
     Active Substance: MONTMORILLONITE
     Indication: DIARRHOEA

REACTIONS (1)
  - Dizziness [Recovered/Resolved]

NARRATIVE: CASE EVENT DATE: 20160919
